FAERS Safety Report 18622541 (Version 1)
Quarter: 2020Q4

REPORT INFORMATION
  Report Type: Spontaneous
  Country: US (occurrence: US)
  Receive Date: 20201215
  Receipt Date: 20201215
  Transmission Date: 20210114
  Serious: Yes (Hospitalization)
  Sender: FDA-Public Use
  Company Number: None

PATIENT
  Age: 81 Year
  Sex: Male
  Weight: 81 kg

DRUGS (7)
  1. FLAGYL [Concomitant]
     Active Substance: METRONIDAZOLE\METRONIDAZOLE HYDROCHLORIDE
     Dates: start: 20201212, end: 20201215
  2. HEPARIN [Concomitant]
     Active Substance: HEPARIN SODIUM
     Dates: start: 20201214, end: 20201215
  3. POTASSIUM [Concomitant]
     Active Substance: POTASSIUM
     Dates: start: 20201213, end: 20201215
  4. ATORVASTATIN 40MG [Concomitant]
     Active Substance: ATORVASTATIN
     Dates: start: 20201201, end: 20201213
  5. ROCEPHIN 2G [Concomitant]
     Dates: start: 20201214, end: 20201215
  6. LOPRESSOR 5MG [Concomitant]
     Dates: start: 20201213, end: 20201215
  7. DAPTOMYCIN. [Suspect]
     Active Substance: DAPTOMYCIN
     Indication: EXTRADURAL ABSCESS
     Route: 042
     Dates: start: 20201202, end: 20201212

REACTIONS (6)
  - SARS-CoV-2 test positive [None]
  - Anosmia [None]
  - Rhabdomyolysis [None]
  - Diarrhoea [None]
  - Ageusia [None]
  - Asthenia [None]

NARRATIVE: CASE EVENT DATE: 20201212
